FAERS Safety Report 19896944 (Version 1)
Quarter: 2021Q3

REPORT INFORMATION
  Report Type: Spontaneous
  Country: NL (occurrence: NL)
  Receive Date: 20210930
  Receipt Date: 20210930
  Transmission Date: 20211014
  Serious: Yes (Hospitalization, Other)
  Sender: FDA-Public Use
  Company Number: NL-AUROBINDO-AUR-APL-2021-040347

PATIENT
  Sex: Female

DRUGS (3)
  1. TRAMADOL HCL [Suspect]
     Active Substance: TRAMADOL HYDROCHLORIDE
     Indication: PANCREATITIS
     Dosage: 3XPER DAY
     Route: 063
  2. BUPRENORPHINE. [Suspect]
     Active Substance: BUPRENORPHINE
     Indication: PANCREATITIS
     Dosage: 1 DOSAGE FORM,IF NECESSARY 8X A DAY
     Route: 063
     Dates: start: 20210901, end: 20210904
  3. MECLOZINE HYDROCHLORIDE [Suspect]
     Active Substance: MECLOZINE DIHYDROCHLORIDE
     Indication: PRURITUS
     Dosage: 2XPER DAY
     Route: 065
     Dates: start: 20210902, end: 20210904

REACTIONS (4)
  - Somnolence neonatal [Unknown]
  - Exposure via breast milk [Unknown]
  - Oxygen saturation decreased [Unknown]
  - Infantile apnoea [Unknown]
